FAERS Safety Report 5430914-5 (Version None)
Quarter: 2007Q3

REPORT INFORMATION
  Report Type: 
  Country: None (occurrence: None)
  Receive Date: 20070830
  Receipt Date: 20070829
  Transmission Date: 20080115
  Serious: Yes (Other)
  Sender: FDA-Public Use
  Company Number: A0676902A

PATIENT
  Age: 65 Year
  Sex: Female

DRUGS (2)
  1. ALLI [Suspect]
     Dosage: 2CAP UNKNOWN
     Route: 048
     Dates: start: 20070814, end: 20070816
  2. ZOLOFT [Concomitant]
     Indication: DEPRESSION

REACTIONS (2)
  - COUGH [None]
  - STRESS URINARY INCONTINENCE [None]
